FAERS Safety Report 11336262 (Version 2)
Quarter: 2015Q3

REPORT INFORMATION
  Report Type: Spontaneous
  Country: US (occurrence: US)
  Receive Date: 20150804
  Receipt Date: 20150825
  Transmission Date: 20151125
  Serious: Yes (Other)
  Sender: FDA-Public Use
  Company Number: US-DRREDDYS-USA/USA/15/0049785

PATIENT
  Age: 42 Year
  Sex: Female

DRUGS (4)
  1. FLUCONAZOLE. [Suspect]
     Active Substance: FLUCONAZOLE
     Indication: COCCIDIOIDOMYCOSIS
     Route: 065
  2. FLUCONAZOLE. [Suspect]
     Active Substance: FLUCONAZOLE
     Indication: COCCIDIOIDOMYCOSIS
  3. TACROLIMUS. [Suspect]
     Active Substance: TACROLIMUS
     Indication: IMMUNOSUPPRESSION
     Route: 065
  4. FLUCONAZOLE. [Suspect]
     Active Substance: FLUCONAZOLE
     Indication: PELIOSIS HEPATIS

REACTIONS (5)
  - Drug ineffective [Unknown]
  - Coccidioidomycosis [Recovered/Resolved]
  - Cutaneous coccidioidomycosis [Recovered/Resolved]
  - Peliosis hepatis [Recovered/Resolved]
  - Product quality issue [Unknown]
